FAERS Safety Report 23157487 (Version 2)
Quarter: 2023Q4

REPORT INFORMATION
  Report Type: Spontaneous
  Country: US (occurrence: US)
  Receive Date: 20231108
  Receipt Date: 20231214
  Transmission Date: 20240109
  Serious: No
  Sender: FDA-Public Use
  Company Number: US-BIOGEN-2023BI01234572

PATIENT
  Sex: Female

DRUGS (1)
  1. TYSABRI [Suspect]
     Active Substance: NATALIZUMAB
     Indication: Multiple sclerosis
     Route: 050
     Dates: start: 20190108

REACTIONS (2)
  - Central nervous system lesion [Unknown]
  - Decreased immune responsiveness [Unknown]
